FAERS Safety Report 9719822 (Version 1)
Quarter: 2013Q4

REPORT INFORMATION
  Report Type: Report from Study
  Country: CA (occurrence: CA)
  Receive Date: 20131128
  Receipt Date: 20131128
  Transmission Date: 20140711
  Serious: Yes (Hospitalization)
  Sender: FDA-Public Use
  Company Number: CA-ROCHE-1306105

PATIENT
  Age: 1 Year
  Sex: Male

DRUGS (1)
  1. PULMOZYME [Suspect]
     Indication: CYSTIC FIBROSIS
     Route: 055
     Dates: end: 20130801

REACTIONS (5)
  - Viral infection [Unknown]
  - Adenovirus infection [Unknown]
  - Constipation [Unknown]
  - Diarrhoea [Unknown]
  - Blood calcium increased [Unknown]
